FAERS Safety Report 25849593 (Version 1)
Quarter: 2025Q3

REPORT INFORMATION
  Report Type: Spontaneous
  Country: EU (occurrence: EU)
  Receive Date: 20250926
  Receipt Date: 20250926
  Transmission Date: 20251021
  Serious: Yes (Other)
  Sender: AMGEN
  Company Number: EU-AMGEN-ESPSP2025190340

PATIENT
  Age: 26 Year
  Sex: Female

DRUGS (1)
  1. BLINATUMOMAB [Suspect]
     Active Substance: BLINATUMOMAB
     Indication: Disease recurrence
     Route: 065
     Dates: start: 2018

REACTIONS (2)
  - Leukaemic infiltration extramedullary [Unknown]
  - Cytokine release syndrome [Unknown]
